FAERS Safety Report 18723392 (Version 1)
Quarter: 2021Q1

REPORT INFORMATION
  Report Type: Spontaneous
  Country: US (occurrence: US)
  Receive Date: 20210108
  Receipt Date: 20210108
  Transmission Date: 20210419
  Serious: No
  Sender: FDA-Public Use
  Company Number: None

PATIENT
  Age: 37 Year
  Sex: Female
  Weight: 78.75 kg

DRUGS (2)
  1. PRENATAL VITAMINS [Concomitant]
     Active Substance: VITAMINS
  2. BIO OIL SKINCARE OIL [COSMETICS] [Suspect]
     Active Substance: COSMETICS
     Indication: SKIN STRIAE
     Dates: start: 20141010, end: 20210107

REACTIONS (4)
  - Product formulation issue [None]
  - Pregnancy [None]
  - Product use complaint [None]
  - Exposure during pregnancy [None]
